FAERS Safety Report 5027676-2 (Version None)
Quarter: 2006Q2

REPORT INFORMATION
  Report Type: 
  Country: None (occurrence: None)
  Receive Date: 20060614
  Receipt Date: 20060614
  Transmission Date: 20061013
  Serious: Yes (Hospitalization)
  Sender: FDA-Public Use
  Company Number: None

PATIENT
  Sex: Female
  Weight: 91 kg

DRUGS (5)
  1. ERLOTINIB [Suspect]
     Indication: COLON CANCER
     Dosage: 100 MG DAILY ORAL
     Route: 048
     Dates: start: 20051212, end: 20060514
  2. FLUOROURACIL [Suspect]
     Indication: COLON CANCER
     Dosage: 320 IV BOLUS
     Route: 040
     Dates: start: 20060117, end: 20060501
  3. FLUOROURACIL [Suspect]
     Indication: COLON CANCER
     Dosage: 1920 CI
     Dates: start: 20060117, end: 20060501
  4. OXALIPITIN (65 MG/M2 ) D1 OF 14 D CYCLE [Suspect]
     Indication: COLON CANCER
     Dosage: 65 IV
     Route: 042
     Dates: start: 20060117, end: 20060501
  5. AVASTIN [Suspect]
     Indication: COLON CANCER
     Dosage: 5 MG IV
     Route: 042
     Dates: start: 20060117, end: 20060501

REACTIONS (11)
  - ABDOMINAL PAIN [None]
  - ABDOMINAL PAIN UPPER [None]
  - CHEST PAIN [None]
  - DIARRHOEA [None]
  - FATIGUE [None]
  - MUCOSAL EXFOLIATION [None]
  - NAUSEA [None]
  - NEUTROPENIA [None]
  - PYREXIA [None]
  - WHITE BLOOD CELL COUNT [None]
  - WHITE BLOOD CELL COUNT ABNORMAL [None]
